FAERS Safety Report 5304767-X (Version None)
Quarter: 2007Q2

REPORT INFORMATION
  Report Type: 
  Country: None (occurrence: None)
  Receive Date: 20070423
  Receipt Date: 20070412
  Transmission Date: 20071010
  Serious: Yes (Hospitalization)
  Sender: FDA-Public Use
  Company Number: US-KINGPHARMUSA00001-K200700469

PATIENT

DRUGS (6)
  1. LEVOXYL [Suspect]
     Indication: HYPOTHYROIDISM
     Route: 048
     Dates: end: 20050101
  2. LEVOXYL [Suspect]
     Dosage: 150 MCG, QD
     Route: 048
     Dates: start: 20050101, end: 20070410
  3. LEVOXYL [Suspect]
     Dosage: 125 MCG, UNK
     Route: 048
     Dates: start: 20070412, end: 20070412
  4. LEVOXYL [Suspect]
     Dosage: 75 MCG, QD
     Route: 048
     Dates: start: 20070413
  5. LISINOPRIL [Concomitant]
     Indication: HYPERTENSION
     Route: 048
     Dates: end: 20070401
  6. EYE DROPS [Concomitant]
     Indication: GLAUCOMA
     Route: 031
     Dates: end: 20070401

REACTIONS (13)
  - BLOOD PRESSURE INCREASED [None]
  - BLOOD THYROID STIMULATING HORMONE DECREASED [None]
  - DEPRESSION [None]
  - HEART RATE INCREASED [None]
  - HYPERTHYROIDISM [None]
  - INCREASED APPETITE [None]
  - IRRITABILITY [None]
  - MUSCULAR WEAKNESS [None]
  - NERVOUSNESS [None]
  - SCHIZOPHRENIA [None]
  - TEMPERATURE INTOLERANCE [None]
  - TREMOR [None]
  - WEIGHT DECREASED [None]
